FAERS Safety Report 7715440-2 (Version None)
Quarter: 2011Q3

REPORT INFORMATION
  Report Type: 
  Country: None (occurrence: None)
  Receive Date: 20110829
  Receipt Date: 20110819
  Transmission Date: 20111222
  Serious: Yes (Other)
  Sender: FDA-Public Use
  Company Number: CA-JNJFOC-20100900745

PATIENT
  Sex: Female
  Weight: 57 kg

DRUGS (6)
  1. REMICADE [Suspect]
     Indication: CROHN'S DISEASE
     Route: 042
     Dates: start: 20110819
  2. REMICADE [Suspect]
     Route: 042
     Dates: start: 20050101
  3. BIRTH CONTROL PILLS [Concomitant]
  4. ESCITALOPRAM [Concomitant]
  5. VITAMIN B-12 [Concomitant]
     Route: 048
  6. FERROUS SULFATE TAB [Concomitant]

REACTIONS (3)
  - FREQUENT BOWEL MOVEMENTS [None]
  - OEDEMA PERIPHERAL [None]
  - ARTHRITIS [None]
